FAERS Safety Report 15419875 (Version 1)
Quarter: 2018Q3

REPORT INFORMATION
  Report Type: Spontaneous
  Country: GB (occurrence: GB)
  Receive Date: 20180924
  Receipt Date: 20180924
  Transmission Date: 20181010
  Serious: Yes (Other)
  Sender: FDA-Public Use
  Company Number: GB-TEVA-2018-GB-957874

PATIENT
  Age: 66 Year
  Sex: Female
  Weight: 72.11 kg

DRUGS (2)
  1. SOTALOL. [Suspect]
     Active Substance: SOTALOL
     Indication: CARDIOVERSION
     Dosage: 160 MILLIGRAM DAILY;
     Route: 048
     Dates: start: 20180227
  2. XARELTO [Concomitant]
     Active Substance: RIVAROXABAN
     Route: 065

REACTIONS (1)
  - Insomnia [Not Recovered/Not Resolved]
